FAERS Safety Report 6272504-0 (Version None)
Quarter: 2009Q3

REPORT INFORMATION
  Report Type: 
  Country: None (occurrence: None)
  Receive Date: 20090713
  Receipt Date: 20090313
  Transmission Date: 20100115
  Serious: Yes (Other)
  Sender: FDA-Public Use
  Company Number: 621956

PATIENT
  Age: 77 Year
  Sex: Female

DRUGS (3)
  1. BONIVA [Suspect]
     Indication: OSTEOPOROSIS
     Dosage: 150 MG
     Dates: start: 20060101
  2. FOSAMAX [Suspect]
     Indication: OSTEOPOROSIS
  3. ACTONEL [Suspect]
     Indication: OSTEOPOROSIS

REACTIONS (2)
  - GASTROOESOPHAGEAL REFLUX DISEASE [None]
  - ULCER [None]
